FAERS Safety Report 7821143-6 (Version None)
Quarter: 2011Q4

REPORT INFORMATION
  Report Type: 
  Country: None (occurrence: None)
  Receive Date: 20111018
  Receipt Date: 20111012
  Transmission Date: 20120403
  Serious: Yes (Hospitalization)
  Sender: FDA-Public Use
  Company Number: IN-BAXTER-2011BH030575

PATIENT
  Age: 11 Month
  Sex: Male

DRUGS (1)
  1. LACTATED RINGER'S [Suspect]
     Indication: PRODUCT USED FOR UNKNOWN INDICATION
     Route: 042
     Dates: start: 20110921

REACTIONS (2)
  - RESPIRATORY ARREST [None]
  - ANAPHYLACTIC SHOCK [None]
